FAERS Safety Report 8161209-7 (Version None)
Quarter: 2012Q1

REPORT INFORMATION
  Report Type: 
  Country: None (occurrence: None)
  Receive Date: 20120103
  Receipt Date: 20110915
  Transmission Date: 20120608
  Serious: No
  Sender: FDA-Public Use
  Company Number: AE-2011-001557

PATIENT
  Age: 59 Year
  Sex: Male

DRUGS (3)
  1. RIBAVIRIN [Concomitant]
  2. PEGASYS [Concomitant]
  3. INCIVEK [Suspect]
     Dates: start: 20110729

REACTIONS (8)
  - VISION BLURRED [None]
  - PRURITUS [None]
  - DEPRESSION [None]
  - CONSTIPATION [None]
  - PROCTALGIA [None]
  - PERIPHERAL COLDNESS [None]
  - RASH PAPULAR [None]
  - ORAL PAIN [None]
